FAERS Safety Report 23064547 (Version 2)
Quarter: 2023Q4

REPORT INFORMATION
  Report Type: Spontaneous
  Country: JP (occurrence: JP)
  Receive Date: 20231013
  Receipt Date: 20231102
  Transmission Date: 20240110
  Serious: Yes (Hospitalization, Other)
  Sender: FDA-Public Use
  Company Number: JP-BRISTOL-MYERS SQUIBB COMPANY-2023-145392

PATIENT
  Age: 53 Year
  Sex: Male

DRUGS (3)
  1. LENADEX [Suspect]
     Active Substance: DEXAMETHASONE ACETATE
     Indication: Plasma cell myeloma
     Dosage: VRD THERAPY (BORTEZOMIB/REVLIMID/LENADEX)
     Dates: start: 202207, end: 202207
  2. REVLIMID [Suspect]
     Active Substance: LENALIDOMIDE
     Indication: Plasma cell myeloma
     Dosage: VRD THERAPY (BORTEZOMIB/REVLIMID/LENADEX)
     Dates: start: 202207, end: 202207
  3. BORTEZOMIB [Suspect]
     Active Substance: BORTEZOMIB
     Indication: Plasma cell myeloma
     Dosage: VRD THERAPY (BORTEZOMIB/REVLIMID/LENADEX)
     Dates: start: 202207, end: 202207

REACTIONS (2)
  - Diplegia [Unknown]
  - Condition aggravated [Recovering/Resolving]

NARRATIVE: CASE EVENT DATE: 20220801
